FAERS Safety Report 6254878-X (Version None)
Quarter: 2009Q3

REPORT INFORMATION
  Report Type: 
  Country: None (occurrence: None)
  Receive Date: 20090702
  Receipt Date: 20090617
  Transmission Date: 20100115
  Serious: Yes (Hospitalization)
  Sender: FDA-Public Use
  Company Number: NZ-AVENTIS-200916444GDDC

PATIENT
  Age: 57 Year
  Sex: Female

DRUGS (5)
  1. LEFLUNOMIDE [Suspect]
     Dates: start: 20040708, end: 20050802
  2. PREDNISONE [Concomitant]
  3. ENALAPRIL [Concomitant]
  4. METFORMIN HCL [Concomitant]
  5. METFORMIN HCL [Concomitant]

REACTIONS (6)
  - ANAEMIA [None]
  - CARDIAC FAILURE [None]
  - CONDITION AGGRAVATED [None]
  - HYPERTENSION [None]
  - LUNG INFILTRATION [None]
  - RENAL IMPAIRMENT [None]
